FAERS Safety Report 5199240-6 (Version None)
Quarter: 2006Q4

REPORT INFORMATION
  Report Type: 
  Country: None (occurrence: None)
  Receive Date: 20061016
  Receipt Date: 20060724
  Transmission Date: 20070319
  Serious: No
  Sender: FDA-Public Use
  Company Number: 2006SP002793

PATIENT
  Age: 87 Year
  Sex: Female
  Weight: 79.3795 kg

DRUGS (3)
  1. LUNESTA [Suspect]
     Indication: INSOMNIA
     Dosage: 1 MG HS ORAL
     Route: 048
     Dates: start: 20060723, end: 20060725
  2. FOSAMAX [Concomitant]
  3. RESTORIL [Concomitant]

REACTIONS (2)
  - DRUG INEFFECTIVE [None]
  - INSOMNIA [None]
